FAERS Safety Report 18028076 (Version 1)
Quarter: 2020Q3

REPORT INFORMATION
  Report Type: Spontaneous
  Country: CN (occurrence: CN)
  Receive Date: 20200715
  Receipt Date: 20200715
  Transmission Date: 20201103
  Serious: Yes (Other)
  Sender: FDA-Public Use
  Company Number: CN-SA-2020SA178675

PATIENT

DRUGS (4)
  1. ZOLOFT [Concomitant]
     Active Substance: SERTRALINE HYDROCHLORIDE
     Indication: DEPRESSION
     Dosage: 150 MG, QD
     Route: 048
     Dates: start: 20200628, end: 20200708
  2. STILNOX [Suspect]
     Active Substance: ZOLPIDEM TARTRATE
     Indication: INSOMNIA
     Dosage: 5 MG, QD
     Route: 048
     Dates: start: 20200628, end: 20200630
  3. STILNOX [Suspect]
     Active Substance: ZOLPIDEM TARTRATE
     Dosage: UNK
     Route: 065
  4. SEROQUEL [Concomitant]
     Active Substance: QUETIAPINE FUMARATE
     Indication: DEPRESSION
     Dosage: 12.5 MG, BID
     Route: 048
     Dates: start: 20200628, end: 20200708

REACTIONS (3)
  - Fear [Recovered/Resolved]
  - Hallucination [Recovered/Resolved]
  - Tension [Recovered/Resolved]

NARRATIVE: CASE EVENT DATE: 20200630
